FAERS Safety Report 21222168 (Version 6)
Quarter: 2023Q2

REPORT INFORMATION
  Report Type: Spontaneous
  Country: US (occurrence: US)
  Receive Date: 20220817
  Receipt Date: 20230425
  Transmission Date: 20230722
  Serious: No
  Sender: FDA-Public Use
  Company Number: US-PFIZER INC-PV202200025878

PATIENT
  Age: 91 Year
  Sex: Female

DRUGS (1)
  1. IBRANCE [Suspect]
     Active Substance: PALBOCICLIB
     Indication: Lung neoplasm malignant
     Dosage: 100 MG

REACTIONS (4)
  - Anxiety [Unknown]
  - Frustration tolerance decreased [Unknown]
  - Product dose omission issue [Unknown]
  - Off label use [Unknown]
